FAERS Safety Report 7236325-4 (Version None)
Quarter: 2011Q1

REPORT INFORMATION
  Report Type: 
  Country: None (occurrence: None)
  Receive Date: 20110120
  Receipt Date: 20110110
  Transmission Date: 20110831
  Serious: Yes (Other)
  Sender: FDA-Public Use
  Company Number: US-WATSON-2011-00415

PATIENT
  Age: 32 Year
  Sex: Male

DRUGS (6)
  1. OXYCODONE HYDROCHLORIDE/APAP UNKNOWN STRENGTH + FORMULATION (WATSON) [Suspect]
     Dosage: UNK
     Route: 065
  2. METHADONE [Suspect]
     Indication: PAIN
     Dosage: 10 MG, Q6H
     Route: 048
  3. MORPHINE SULFATE [Suspect]
     Dosage: 4 MG, / 3 HOURS
     Route: 042
  4. HYDROMORPHONE HYDROCHLORIDE [Suspect]
     Dosage: 6 MG, / 3 HOURS
     Route: 065
  5. MORPHINE SULFATE [Suspect]
     Dosage: 4 MG, / 3 HOURS
     Route: 042
  6. HYDROCODONE BITARTRATE/ACETAMINOPHEN [Suspect]
     Indication: PAIN
     Dosage: 2 TABLETS, PRN
     Route: 048

REACTIONS (1)
  - HYPERAESTHESIA [None]
